FAERS Safety Report 9039752 (Version 4)
Quarter: 2014Q1

REPORT INFORMATION
  Report Type: Spontaneous
  Country: US (occurrence: US)
  Receive Date: 20130130
  Receipt Date: 20140127
  Transmission Date: 20141002
  Serious: Yes (Hospitalization)
  Sender: FDA-Public Use
  Company Number: US-BIOGENIDEC-2013BI007103

PATIENT
  Age: 48 Year
  Sex: Female

DRUGS (1)
  1. AVONEX [Suspect]
     Indication: MULTIPLE SCLEROSIS
     Route: 030
     Dates: start: 20120209

REACTIONS (4)
  - Pneumonia [Not Recovered/Not Resolved]
  - Aspiration [Recovered/Resolved]
  - Convulsion [Recovered/Resolved]
  - Memory impairment [Not Recovered/Not Resolved]
